FAERS Safety Report 9331053 (Version 2)
Quarter: 2013Q4

REPORT INFORMATION
  Report Type: Report from Study
  Country: GB (occurrence: GB)
  Receive Date: 20130605
  Receipt Date: 20131205
  Transmission Date: 20140711
  Serious: Yes (Hospitalization)
  Sender: FDA-Public Use
  Company Number: GB-ROCHE-1066688

PATIENT
  Age: 71 Year
  Sex: Male
  Weight: 95.2 kg

DRUGS (8)
  1. VEMURAFENIB [Suspect]
     Indication: MALIGNANT MELANOMA
     Dosage: DATE OF LAST DOSE PRIOR TO SAE: 03/MAY/2012
     Route: 048
     Dates: start: 20120319, end: 20120504
  2. VEMURAFENIB [Suspect]
     Route: 048
     Dates: start: 20120511
  3. VEMURAFENIB [Suspect]
     Dosage: DATE OF LAST DOSE PRIOR TO THE EVENT: 10/APR/2012
     Route: 048
     Dates: start: 20120319, end: 20120411
  4. VEMURAFENIB [Suspect]
     Route: 048
     Dates: start: 20120423
  5. AMOXICILLIN [Concomitant]
     Route: 065
     Dates: start: 20120427
  6. AMLODIPINE [Concomitant]
  7. LANSOPRAZOLE [Concomitant]
  8. SIMVASTATIN [Concomitant]

REACTIONS (2)
  - Pneumonia [Recovered/Resolved]
  - Pyrexia [Recovered/Resolved]
